FAERS Safety Report 9391053 (Version 1)
Quarter: 2013Q3

REPORT INFORMATION
  Report Type: Spontaneous
  Country: US (occurrence: US)
  Receive Date: 20130709
  Receipt Date: 20130709
  Transmission Date: 20140515
  Serious: Yes (Hospitalization)
  Sender: FDA-Public Use
  Company Number: 2013SP001906

PATIENT
  Age: 25 Year
  Sex: Female

DRUGS (2)
  1. LATUDA [Suspect]
     Indication: SCHIZOAFFECTIVE DISORDER
     Route: 048
     Dates: start: 20130626
  2. HALDOL                             /00027401/ [Concomitant]
     Indication: PRODUCT USED FOR UNKNOWN INDICATION

REACTIONS (3)
  - Physical assault [Recovered/Resolved]
  - Aggression [Recovered/Resolved]
  - Pregnancy [None]
